FAERS Safety Report 15325799 (Version 1)
Quarter: 2018Q3

REPORT INFORMATION
  Report Type: Spontaneous
  Country: US (occurrence: US)
  Receive Date: 20180822
  Receipt Date: 20180822
  Transmission Date: 20181010
  Serious: Yes (Hospitalization)
  Sender: FDA-Public Use
  Company Number: None

PATIENT
  Age: 27 Year
  Sex: Male
  Weight: 91.35 kg

DRUGS (5)
  1. FLUPHENAZINE 2.5MG TABLET [Concomitant]
     Dates: start: 20180628, end: 20180629
  2. SUMATRIPTAN 50MG TABLET [Concomitant]
     Dates: start: 20180625, end: 20180630
  3. FLUPHENAZINE [Suspect]
     Active Substance: FLUPHENAZINE
     Indication: SCHIZOPHRENIA
     Dosage: ?          OTHER FREQUENCY:ONCE;?
     Route: 030
     Dates: start: 20180629, end: 20180629
  4. CLONIDINE 0.2MG [Concomitant]
     Dates: start: 20180629, end: 20180713
  5. SERTRALINE 200MG TABLET [Concomitant]
     Dates: start: 20180621, end: 20180713

REACTIONS (3)
  - Muscle rigidity [None]
  - Hyperhidrosis [None]
  - Extrapyramidal disorder [None]

NARRATIVE: CASE EVENT DATE: 20180630
